FAERS Safety Report 14280499 (Version 3)
Quarter: 2018Q1

REPORT INFORMATION
  Report Type: Report from Study
  Country: CA (occurrence: CA)
  Receive Date: 20171213
  Receipt Date: 20180109
  Transmission Date: 20180508
  Serious: Yes (Hospitalization)
  Sender: FDA-Public Use
  Company Number: CA-BEH-2017085751

PATIENT
  Age: 83 Year
  Sex: Female

DRUGS (3)
  1. HAEMATE P [Suspect]
     Active Substance: ANTIHEMOPHILIC FACTOR HUMAN
     Indication: VON WILLEBRAND^S DISEASE
     Dosage: 5000 IU, 4 TIMES PER WEEK
     Route: 065
     Dates: start: 20160421
  2. HYDROMORPHONE [Concomitant]
     Active Substance: HYDROMORPHONE
  3. HAEMATE P [Suspect]
     Active Substance: ANTIHEMOPHILIC FACTOR HUMAN
     Dosage: UNK
     Route: 065
     Dates: start: 20171205

REACTIONS (3)
  - Blood pressure increased [Unknown]
  - Hospitalisation [Unknown]
  - Arthralgia [Unknown]

NARRATIVE: CASE EVENT DATE: 20180104
